FAERS Safety Report 8961018 (Version 2)
Quarter: 2013Q4

REPORT INFORMATION
  Report Type: Spontaneous
  Country: US (occurrence: US)
  Receive Date: 20121212
  Receipt Date: 20131022
  Transmission Date: 20140711
  Serious: No
  Sender: FDA-Public Use
  Company Number: US-ASTRAZENECA-2012SE89863

PATIENT
  Age: 88 Year
  Sex: Male

DRUGS (3)
  1. PULMICORT FLEXHALER [Suspect]
     Indication: ASTHMA
     Dosage: ONE PUFF IN THE AM AND TWO PUFFS IN THE PM
     Route: 055
     Dates: start: 201210
  2. PULMICORT FLEXHALER [Suspect]
     Indication: ASTHMA
     Dosage: EITHER 1 PUFF OR 2 PUFFS TWICE DAILY
     Route: 055
     Dates: start: 201210
  3. CRESTOR [Suspect]
     Indication: BLOOD CHOLESTEROL INCREASED
     Route: 048

REACTIONS (3)
  - Ear pruritus [Unknown]
  - Pneumonia [Recovered/Resolved]
  - Off label use [Unknown]
